FAERS Safety Report 25937153 (Version 3)
Quarter: 2025Q4

REPORT INFORMATION
  Report Type: Spontaneous
  Country: EU (occurrence: EU)
  Receive Date: 20251017
  Receipt Date: 20251211
  Transmission Date: 20260118
  Serious: No
  Sender: VERITY PHARMACEUTICALS INC.
  Company Number: EU-VER-202500032

PATIENT
  Age: 8 Year
  Sex: Male
  Weight: 24 kg

DRUGS (2)
  1. TRIPTORELIN PAMOATE [Suspect]
     Active Substance: TRIPTORELIN PAMOATE
     Indication: Precocious puberty
     Dosage: FORM STRENGTH- 11.25 MILLIGRAM?POWDER AND SOLVENT FOR SUSPENSION FOR INJECTION
     Route: 065
     Dates: start: 20241024, end: 20250730
  2. ENANTONE LP [Suspect]
     Active Substance: LEUPROLIDE ACETATE
     Indication: Precocious puberty
     Dosage: 11.5 MG / 12 WEEKS
     Route: 065
     Dates: start: 20240501, end: 20240831

REACTIONS (3)
  - Injection site reaction [Recovered/Resolved]
  - Somnolence [Not Recovered/Not Resolved]
  - Epilepsy [Not Recovered/Not Resolved]

NARRATIVE: CASE EVENT DATE: 20240501
